FAERS Safety Report 18285051 (Version 1)
Quarter: 2020Q3

REPORT INFORMATION
  Report Type: Spontaneous
  Country: US (occurrence: US)
  Receive Date: 20200918
  Receipt Date: 20200918
  Transmission Date: 20201103
  Serious: Yes (Other)
  Sender: FDA-Public Use
  Company Number: US-PFIZER INC-2020353847

PATIENT
  Age: 84 Year
  Sex: Male
  Weight: 68.93 kg

DRUGS (2)
  1. LEVOTHYROXINE SODIUM. [Suspect]
     Active Substance: LEVOTHYROXINE SODIUM
     Dosage: 100 UG, ALTERNATE DAY (EVERY OTHER DAY)
  2. LEVOTHYROXINE SODIUM. [Suspect]
     Active Substance: LEVOTHYROXINE SODIUM
     Dosage: 112 UG, DAILY

REACTIONS (1)
  - Hyperthyroidism [Unknown]

NARRATIVE: CASE EVENT DATE: 202006
